FAERS Safety Report 5154039-1 (Version None)
Quarter: 2006Q4

REPORT INFORMATION
  Report Type: 
  Country: None (occurrence: None)
  Receive Date: 20061120
  Receipt Date: 20061109
  Transmission Date: 20070319
  Serious: Yes (Hospitalization)
  Sender: FDA-Public Use
  Company Number: JP-ROCHE-470604

PATIENT
  Age: 59 Year
  Sex: Male

DRUGS (2)
  1. PANALDINE [Suspect]
     Indication: CEREBRAL INFARCTION
     Route: 048
  2. LIPITOR [Suspect]
     Indication: DRUG USE FOR UNKNOWN INDICATION
     Route: 065

REACTIONS (3)
  - ALVEOLITIS ALLERGIC [None]
  - COUGH [None]
  - DYSPNOEA [None]
